FAERS Safety Report 5740820-4 (Version None)
Quarter: 2008Q2

REPORT INFORMATION
  Report Type: 
  Country: None (occurrence: None)
  Receive Date: 20080516
  Receipt Date: 20080507
  Transmission Date: 20081010
  Serious: Yes (Other)
  Sender: FDA-Public Use
  Company Number: DE-ELI_LILLY_AND_COMPANY-DE200804004787

PATIENT
  Sex: Female

DRUGS (6)
  1. YENTREVE [Suspect]
     Indication: STRESS URINARY INCONTINENCE
     Dosage: 80 MG, DAILY (1/D)
     Route: 048
  2. YENTREVE [Suspect]
     Dosage: 80 MG, DAILY (1/D)
     Route: 048
  3. PANTOPRAZOLE SODIUM [Concomitant]
     Dosage: UNK, UNKNOWN
     Route: 065
  4. JODETTEN [Concomitant]
     Dosage: UNK, UNKNOWN
     Route: 065
  5. METAMIZOL [Concomitant]
     Dosage: UNK, UNKNOWN
     Route: 065
  6. ANAESTHETICS [Concomitant]
     Indication: SURGERY
     Dosage: UNK, UNKNOWN

REACTIONS (3)
  - ARTHROPATHY [None]
  - INAPPROPRIATE ANTIDIURETIC HORMONE SECRETION [None]
  - MANIA [None]
